FAERS Safety Report 4526116-7 (Version None)
Quarter: 2004Q4

REPORT INFORMATION
  Report Type: 
  Country: None (occurrence: None)
  Receive Date: 20041213
  Receipt Date: 20041213
  Transmission Date: 20050328
  Serious: Yes (Hospitalization)
  Sender: FDA-Public Use
  Company Number: None

PATIENT
  Age: 54 Year
  Sex: Male
  Weight: 61.6 kg

DRUGS (4)
  1. ACETAMINOPHEN/HYDROCODONE 5/500MG [Suspect]
     Indication: PAIN
     Dosage: 1-2 TABS PO Q4HR PRN; MAX 8 IN 24 HR PERIOD
     Route: 048
     Dates: start: 20040831
  2. ITRACONAZOLE [Concomitant]
  3. OMEPRAZOLE [Concomitant]
  4. AMIODARONE [Concomitant]

REACTIONS (4)
  - ASPERGILLOMA [None]
  - DRUG TOXICITY [None]
  - HEPATIC ENZYME INCREASED [None]
  - OVERDOSE [None]
